FAERS Safety Report 4398545-6 (Version None)
Quarter: 2004Q3

REPORT INFORMATION
  Report Type: 
  Country: None (occurrence: None)
  Receive Date: 20040715
  Receipt Date: 20040702
  Transmission Date: 20050211
  Serious: Yes (Life-Threatening)
  Sender: FDA-Public Use
  Company Number: 372421

PATIENT
  Age: 72 Year
  Sex: Male

DRUGS (2)
  1. DILATREND [Suspect]
     Dosage: 6.21MG TWICE PER DAY
     Route: 048
     Dates: start: 20040405, end: 20040505
  2. CERIVASTATIN [Concomitant]
     Indication: HYPERSENSITIVITY

REACTIONS (2)
  - MYALGIA [None]
  - THROMBOCYTOPENIA [None]
